FAERS Safety Report 9671240 (Version 2)
Quarter: 2013Q4

REPORT INFORMATION
  Report Type: Spontaneous
  Country: US (occurrence: US)
  Receive Date: 20131106
  Receipt Date: 20131209
  Transmission Date: 20140711
  Serious: Yes (Other)
  Sender: FDA-Public Use
  Company Number: ALCN2013US005572

PATIENT
  Age: 86 Year
  Sex: Male

DRUGS (2)
  1. BRIMONIDINE [Suspect]
     Indication: INTRAOCULAR PRESSURE INCREASED
     Dosage: 1 GTT, BID
     Route: 047
     Dates: start: 2005
  2. XALATAN [Concomitant]
     Indication: INTRAOCULAR PRESSURE INCREASED
     Dosage: UNK
     Dates: start: 2005

REACTIONS (3)
  - Visual field defect [Unknown]
  - Intraocular pressure increased [Unknown]
  - Eye irritation [Not Recovered/Not Resolved]
